FAERS Safety Report 7345488-1 (Version None)
Quarter: 2011Q1

REPORT INFORMATION
  Report Type: 
  Country: None (occurrence: None)
  Receive Date: 20110310
  Receipt Date: 20110310
  Transmission Date: 20110831
  Serious: Yes (Hospitalization)
  Sender: FDA-Public Use
  Company Number: PHHO2010US08001

PATIENT
  Sex: Female
  Weight: 121.4 kg

DRUGS (1)
  1. ACZ885 [Suspect]
     Indication: DIABETES MELLITUS
     Dosage: 50 MG, UNK
     Route: 042
     Dates: start: 20100302

REACTIONS (4)
  - ERYTHEMA [None]
  - OEDEMA PERIPHERAL [None]
  - CELLULITIS [None]
  - BLISTER [None]
